FAERS Safety Report 16614781 (Version 1)
Quarter: 2019Q3

REPORT INFORMATION
  Report Type: Spontaneous
  Country: BR (occurrence: BR)
  Receive Date: 20190723
  Receipt Date: 20190723
  Transmission Date: 20191004
  Serious: Yes (Other)
  Sender: FDA-Public Use
  Company Number: BR-PFIZER INC-2019310668

PATIENT
  Age: 74 Year
  Sex: Female

DRUGS (4)
  1. FRONTAL [Concomitant]
     Active Substance: ALPRAZOLAM
     Indication: ANXIETY
     Dosage: UNK
  2. LIPITOR [Suspect]
     Active Substance: ATORVASTATIN CALCIUM
     Indication: BLOOD CHOLESTEROL ABNORMAL
     Dosage: 20 MG, ONE TABLET DAILY
  3. FRONTAL [Concomitant]
     Active Substance: ALPRAZOLAM
     Indication: INSOMNIA
     Dosage: UNK
  4. ESTRADIOL. [Concomitant]
     Active Substance: ESTRADIOL
     Indication: PAIN
     Dosage: UNK

REACTIONS (3)
  - Cataract [Unknown]
  - Pain in extremity [Unknown]
  - Labyrinthitis [Unknown]

NARRATIVE: CASE EVENT DATE: 2015
